FAERS Safety Report 5286800-7 (Version None)
Quarter: 2007Q2

REPORT INFORMATION
  Report Type: 
  Country: None (occurrence: None)
  Receive Date: 20070404
  Receipt Date: 20070329
  Transmission Date: 20071010
  Serious: Yes (Disabling)
  Sender: FDA-Public Use
  Company Number: CAWYE266529MAR07

PATIENT
  Age: 86 Year
  Sex: Female
  Weight: 45.4 kg

DRUGS (1)
  1. EFFEXOR XR [Suspect]
     Indication: DEPRESSION
     Dosage: 75 MG EVERY 1 TOT
     Route: 048
     Dates: start: 20070301, end: 20070301

REACTIONS (4)
  - ACTIVITIES OF DAILY LIVING IMPAIRED [None]
  - ASTHENIA [None]
  - DISORIENTATION [None]
  - INCONTINENCE [None]
